FAERS Safety Report 23700847 (Version 2)
Quarter: 2024Q4

REPORT INFORMATION
  Report Type: Spontaneous
  Country: US (occurrence: US)
  Receive Date: 20240403
  Receipt Date: 20241120
  Transmission Date: 20250114
  Serious: Yes (Other)
  Sender: REGENERON
  Company Number: US-REGENERON PHARMACEUTICALS, INC.-2024-052565

PATIENT
  Sex: Female

DRUGS (6)
  1. EYLEA HD [Suspect]
     Active Substance: AFLIBERCEPT
     Indication: Neovascular age-related macular degeneration
     Dosage: 8 MG, RIGHT EYE (FORMULATION: HD VIAL)
     Route: 031
  2. EYLEA HD [Suspect]
     Active Substance: AFLIBERCEPT
     Indication: Diabetic retinal oedema
     Dosage: 8 MG, RIGHT EYE (FORMULATION: HD VIAL)
     Route: 031
  3. EYLEA HD [Suspect]
     Active Substance: AFLIBERCEPT
     Dosage: 5.7 MG/ 0.05 ML, RIGHT EYE (FORMULATION: HD VIAL)
     Route: 031
  4. EYLEA HD [Suspect]
     Active Substance: AFLIBERCEPT
     Dosage: 6.86 MG/ 0.06 ML, RIGHT EYE (FORMULATION: HD VIAL)
     Route: 031
  5. EYLEA HD [Suspect]
     Active Substance: AFLIBERCEPT
     Dosage: 6.86 MG/ 0.06 ML, RIGHT EYE (FORMULATION: HD VIAL)
     Route: 031
  6. EYLEA HD [Suspect]
     Active Substance: AFLIBERCEPT
     Dosage: 6.86 MG/ 0.06 ML, RIGHT EYE (FORMULATION: HD VIAL)
     Route: 031

REACTIONS (3)
  - Blindness transient [Recovered/Resolved]
  - Intraocular pressure increased [Unknown]
  - Incorrect dose administered [Unknown]
